FAERS Safety Report 15624589 (Version 1)
Quarter: 2018Q4

REPORT INFORMATION
  Report Type: Spontaneous
  Country: US (occurrence: US)
  Receive Date: 20181116
  Receipt Date: 20181116
  Transmission Date: 20190205
  Serious: Yes (Hospitalization, Other)
  Sender: FDA-Public Use
  Company Number: US-UCBSA-2018049926

PATIENT
  Age: 51 Year
  Sex: Female

DRUGS (1)
  1. CIMZIA [Suspect]
     Active Substance: CERTOLIZUMAB PEGOL
     Indication: CROHN^S DISEASE
     Dosage: NDC #: 50474071079
     Route: 058
     Dates: start: 20180715

REACTIONS (7)
  - Erythema [Unknown]
  - Sinusitis [Unknown]
  - Clostridium difficile infection [Unknown]
  - Crohn^s disease [Unknown]
  - Pyrexia [Unknown]
  - Abdominal pain upper [Unknown]
  - Root canal infection [Unknown]

NARRATIVE: CASE EVENT DATE: 2018
